FAERS Safety Report 4763973-3 (Version None)
Quarter: 2005Q3

REPORT INFORMATION
  Report Type: 
  Country: None (occurrence: None)
  Receive Date: 20050906
  Receipt Date: 20050822
  Transmission Date: 20060218
  Serious: Yes (Hospitalization)
  Sender: FDA-Public Use
  Company Number: 2005BI013858

PATIENT
  Age: 58 Year
  Sex: Female

DRUGS (11)
  1. AVONEX [Suspect]
     Indication: MULTIPLE SCLEROSIS
     Dosage: 30 UG;QW;IM
     Route: 030
     Dates: start: 20040520
  2. PREMARIN [Concomitant]
  3. LEXAPRO [Concomitant]
  4. CELEBREX [Concomitant]
  5. FLEXERIL [Concomitant]
  6. VERAPAMIL [Concomitant]
  7. TRICOR [Concomitant]
  8. ATENOLOL [Concomitant]
  9. DIAZIDE [Concomitant]
  10. AMBIEN [Concomitant]
  11. ADVAIR DISKUS 100/50 [Concomitant]

REACTIONS (2)
  - FALL [None]
  - ROTATOR CUFF SYNDROME [None]
